FAERS Safety Report 9236856 (Version 1)
Quarter: 2013Q2

REPORT INFORMATION
  Report Type: Spontaneous
  Country: CN (occurrence: None)
  Receive Date: 20130415
  Receipt Date: 20130415
  Transmission Date: 20140414
  Serious: Yes (Other)
  Sender: FDA-Public Use
  Company Number: FK201301102

PATIENT
  Age: 29 Year
  Sex: Female
  Weight: 73 kg

DRUGS (7)
  1. MAGNESIUM SULFATE [Suspect]
     Indication: PRODUCT USED FOR UNKNOWN INDICATION
     Dosage: 4% MGSO4, 500 ML SOLUTION, 40
  2. MAGNESIUM SULFATE [Suspect]
     Indication: PRODUCT USED FOR UNKNOWN INDICATION
     Dosage: 4% MGSO4, 500 ML SOLUTION, 40
  3. MAGNESIUM SULFATE [Suspect]
     Indication: GENERAL ANAESTHESIA
     Dosage: 4% MGSO4, 500 ML SOLUTION, 40
  4. MAGNESIUM SULFATE [Suspect]
     Indication: SEDATION
     Dosage: 4% MGSO4, 500 ML SOLUTION, 40
  5. FUROSEMIDE [Suspect]
  6. PROPOFOL [Suspect]
  7. TRAMADOL (TRAMADOL) [Suspect]

REACTIONS (6)
  - Delayed recovery from anaesthesia [None]
  - Metabolic acidosis [None]
  - Respiratory acidosis [None]
  - Incorrect drug administration rate [None]
  - Incorrect drug administration rate [None]
  - Toxicity to various agents [None]
